FAERS Safety Report 9699591 (Version 2)
Quarter: 2013Q4

REPORT INFORMATION
  Report Type: Spontaneous
  Country: US (occurrence: US)
  Receive Date: 20131120
  Receipt Date: 20131120
  Transmission Date: 20140711
  Serious: Yes (Hospitalization)
  Sender: FDA-Public Use
  Company Number: US-TEVA-369114USA

PATIENT
  Age: 25 Year
  Sex: Female
  Weight: 88.53 kg

DRUGS (3)
  1. PARAGARD 380A [Suspect]
     Indication: CONTRACEPTION
     Route: 015
     Dates: start: 20110523, end: 20121114
  2. TRAMADOL [Concomitant]
  3. INSULIN [Concomitant]
     Indication: DIABETES MELLITUS

REACTIONS (4)
  - Pelvic inflammatory disease [Recovered/Resolved with Sequelae]
  - Chlamydial infection [Recovered/Resolved with Sequelae]
  - Pelvic pain [Unknown]
  - Device dislocation [Recovered/Resolved]
